FAERS Safety Report 24322078 (Version 1)
Quarter: 2024Q3

REPORT INFORMATION
  Report Type: Spontaneous
  Country: US (occurrence: US)
  Receive Date: 20240916
  Receipt Date: 20240916
  Transmission Date: 20241017
  Serious: No
  Sender: SANOFI AVENTIS
  Company Number: US-SA-2024SA266091

PATIENT
  Age: 12 Year
  Sex: Male

DRUGS (4)
  1. DUPIXENT [Suspect]
     Active Substance: DUPILUMAB
     Indication: Dermatitis atopic
     Dosage: 300 MG, QOW
     Route: 058
     Dates: start: 20240621
  2. CLARITIN [Concomitant]
     Active Substance: LORATADINE
     Route: 048
  3. TYLENOL 8HR [Concomitant]
     Active Substance: ACETAMINOPHEN
     Route: 048
  4. ADVIL ALLERGY SINUS [Concomitant]
     Active Substance: CHLORPHENIRAMINE MALEATE\IBUPROFEN\PSEUDOEPHEDRINE HYDROCHLORIDE
     Route: 048

REACTIONS (1)
  - Dermatitis atopic [Unknown]

NARRATIVE: CASE EVENT DATE: 20240828
